FAERS Safety Report 12565673 (Version 1)
Quarter: 2016Q3

REPORT INFORMATION
  Report Type: Spontaneous
  Country: FR (occurrence: FR)
  Receive Date: 20160718
  Receipt Date: 20160718
  Transmission Date: 20161109
  Serious: Yes (Life-Threatening, Hospitalization)
  Sender: FDA-Public Use
  Company Number: FR-PFIZER INC-2016337012

PATIENT
  Age: 28 Year
  Sex: Female

DRUGS (19)
  1. ATARAX [Suspect]
     Active Substance: HYDROXYZINE\HYDROXYZINE HYDROCHLORIDE
     Dosage: 525 MG, SINGLE
     Route: 048
     Dates: start: 20160115, end: 20160117
  2. VENLAFAXINE (CARBOPOL MATRIX) [Suspect]
     Active Substance: VENLAFAXINE HYDROCHLORIDE
     Dosage: 5925 MG, SINGLE
     Route: 048
     Dates: start: 20160115, end: 20160117
  3. DOLIPRANE [Suspect]
     Active Substance: ACETAMINOPHEN
     Dosage: 8 G, SINGLE
     Route: 048
     Dates: start: 20160115, end: 20160117
  4. CLOTIAZEPAM [Suspect]
     Active Substance: CLOTIAZEPAM
     Dosage: 90 MG, SINGLE
     Route: 048
     Dates: start: 20160115, end: 20160117
  5. THERALENE [Suspect]
     Active Substance: TRIMEPRAZINE
     Dosage: 215 MG, SINGLE
     Route: 048
     Dates: start: 20160115, end: 20160117
  6. ZYRTEC [Suspect]
     Active Substance: CETIRIZINE HYDROCHLORIDE
     Dosage: 150 MG, SINGLE
     Route: 048
     Dates: start: 20160115, end: 20160117
  7. ALPRAZOLAM. [Suspect]
     Active Substance: ALPRAZOLAM
     Dosage: 17 MG, SINGLE
     Route: 048
     Dates: start: 20160115, end: 20160117
  8. IBUPROFEN. [Suspect]
     Active Substance: IBUPROFEN
     Dosage: 4800 MG, SINGLE
     Route: 048
     Dates: start: 20160115, end: 20160117
  9. OMEPRAZOLE. [Suspect]
     Active Substance: OMEPRAZOLE
     Dosage: 100 MG, SINGLE
     Route: 048
     Dates: start: 20160115, end: 20160117
  10. BACLOFEN. [Suspect]
     Active Substance: BACLOFEN
     Dosage: 960 MG, SINGLE
     Route: 048
     Dates: start: 20160115, end: 20160117
  11. XEROQUEL [Suspect]
     Active Substance: QUETIAPINE FUMARATE
     Dosage: 13200 MG, SINGLE
     Route: 048
     Dates: start: 20160115, end: 20160117
  12. SPASFON /00765801/ [Suspect]
     Active Substance: PHLOROGLUCINOL\1,3,5-TRIMETHOXYBENZENE
     Dosage: 1600 MG, SINGLE
     Route: 048
     Dates: start: 20160115, end: 20160117
  13. PYOSTACINE [Suspect]
     Active Substance: PRISTINAMYCIN
     Dosage: 10000 MG, SINGLE
     Route: 048
     Dates: start: 20160115, end: 20160117
  14. ACETYLSALICYLIC ACID [Suspect]
     Active Substance: ASPIRIN
     Dosage: 1400 MG, SINGLE
     Route: 048
     Dates: start: 20160115, end: 20160117
  15. KETOPROFEN. [Suspect]
     Active Substance: KETOPROFEN
     Dosage: 1700 MG, SINGLE
     Route: 048
     Dates: start: 20160115, end: 20160117
  16. DAFLON /00426001/ [Suspect]
     Active Substance: DIOSMIN
     Dosage: 59500 MG, SINGLE
     Route: 048
     Dates: start: 20160115, end: 20160117
  17. ZOPLICONE [Suspect]
     Active Substance: ZOPICLONE
     Dosage: 82.5 MG, SINGLE
     Route: 048
     Dates: start: 20160115, end: 20160117
  18. NALTREXONE HYDROCHLORIDE. [Suspect]
     Active Substance: NALTREXONE HYDROCHLORIDE
     Dosage: 1400 MG, SINGLE
     Route: 048
     Dates: start: 20160115, end: 20160117
  19. SULFARLEM [Suspect]
     Active Substance: ANETHOLTRITHION
     Dosage: 3750 MG, SINGLE
     Route: 048
     Dates: start: 20160115, end: 20160117

REACTIONS (5)
  - Electrocardiogram QT prolonged [Recovered/Resolved]
  - Coma [Recovered/Resolved]
  - Hepatocellular injury [Recovered/Resolved]
  - Status epilepticus [Recovered/Resolved]
  - Poisoning deliberate [Recovered/Resolved]

NARRATIVE: CASE EVENT DATE: 201601
